FAERS Safety Report 4302880-7 (Version None)
Quarter: 2004Q1

REPORT INFORMATION
  Report Type: 
  Country: None (occurrence: None)
  Receive Date: 20040220
  Receipt Date: 20040206
  Transmission Date: 20041129
  Serious: Yes (Hospitalization)
  Sender: FDA-Public Use
  Company Number: MPS1-10167

PATIENT
  Age: 9 Year
  Sex: Male

DRUGS (1)
  1. ALDURAZYME [Suspect]
     Dosage: 0.58 MG/KG QWK IV
     Route: 042
     Dates: start: 20030801, end: 20040123

REACTIONS (5)
  - ATELECTASIS [None]
  - DISEASE PROGRESSION [None]
  - RESPIRATORY FAILURE [None]
  - RESPIRATORY TRACT INFECTION [None]
  - STAPHYLOCOCCAL INFECTION [None]
